FAERS Safety Report 7417276-9 (Version None)
Quarter: 2011Q2

REPORT INFORMATION
  Report Type: 
  Country: None (occurrence: None)
  Receive Date: 20110415
  Receipt Date: 20110411
  Transmission Date: 20111010
  Serious: Yes (Other)
  Sender: FDA-Public Use
  Company Number: DE-BRISTOL-MYERS SQUIBB COMPANY-15110901

PATIENT
  Age: 65 Year
  Sex: Male
  Weight: 121 kg

DRUGS (2)
  1. ONGLYZA [Suspect]
     Indication: DIABETES MELLITUS
     Dosage: INTERRUPTED ON 12-NOV-2009 AND REINTRODUCED BY PATIENT ON 16-APR-2010.
     Route: 048
     Dates: start: 20091109
  2. ATACAND [Suspect]

REACTIONS (1)
  - ANGIOEDEMA [None]
